FAERS Safety Report 6032498-X (Version None)
Quarter: 2009Q1

REPORT INFORMATION
  Report Type: 
  Country: None (occurrence: None)
  Receive Date: 20090109
  Receipt Date: 20081007
  Transmission Date: 20090719
  Serious: No
  Sender: FDA-Public Use
  Company Number: A0750806A

PATIENT
  Age: 58 Year
  Sex: Female

DRUGS (6)
  1. TYKERB [Suspect]
     Indication: BREAST CANCER
     Dosage: 1250MG PER DAY
     Route: 048
     Dates: start: 20081004
  2. XELODA [Concomitant]
  3. BLOOD PRESSURE MEDICATION [Concomitant]
  4. METFORMIN HCL [Concomitant]
  5. HYDROCODONE [Concomitant]
  6. ONDANSETRON [Concomitant]

REACTIONS (1)
  - NAUSEA [None]
